FAERS Safety Report 18477056 (Version 2)
Quarter: 2021Q1

REPORT INFORMATION
  Report Type: Spontaneous
  Country: CZ (occurrence: CZ)
  Receive Date: 20201107
  Receipt Date: 20210227
  Transmission Date: 20210419
  Serious: Yes (Hospitalization)
  Sender: FDA-Public Use
  Company Number: NVSC2020CZ292603

PATIENT
  Age: 56 Year
  Sex: Male
  Weight: 97 kg

DRUGS (19)
  1. TRAMAL [Concomitant]
     Active Substance: TRAMADOL
     Indication: PAIN
     Dosage: 50 MG, PRN
     Route: 048
  2. ZINNAT [Concomitant]
     Active Substance: CEFUROXIME
     Indication: INFECTION PROPHYLAXIS
     Dosage: 500 MG, Q12H
     Route: 048
  3. NEUROL [Concomitant]
     Indication: SLEEP DISORDER
     Dosage: 0.25 MG, PRN
     Route: 048
  4. BETALOC ZOK [Concomitant]
     Active Substance: METOPROLOL SUCCINATE
     Indication: HYPERTENSION
     Dosage: 25 MG, QD
     Route: 048
  5. VALGANCICLOVIR HYDROCHLORIDE. [Suspect]
     Active Substance: VALGANCICLOVIR HYDROCHLORIDE
     Indication: PRODUCT USED FOR UNKNOWN INDICATION
     Dosage: UNK
     Route: 065
  6. TOUJEO [Concomitant]
     Active Substance: INSULIN GLARGINE
     Indication: DIABETES MELLITUS
     Dosage: 34 DF,QD (34 U, QD)
     Route: 058
  7. SEROPRAM [Concomitant]
     Indication: DEPRESSION
     Dosage: 20 MG, QD
     Route: 048
  8. XULTOPHY 100/3.6 [Concomitant]
     Active Substance: INSULIN DEGLUDEC\LIRAGLUTIDE
     Indication: DIABETES MELLITUS
     Dosage: 26 DF, QD
     Route: 058
  9. MILURIT [Concomitant]
     Active Substance: ALLOPURINOL
     Indication: HYPERURICAEMIA
     Dosage: 100 MG, QD
     Route: 048
  10. ALIROCUMAB [Suspect]
     Active Substance: ALIROCUMAB
     Indication: PRODUCT USED FOR UNKNOWN INDICATION
     Dosage: UNK, Q2W
     Route: 058
     Dates: start: 20200910
  11. MAGNESII LACTICI [Concomitant]
     Active Substance: MAGNESIUM LACTATE
     Indication: PROPHYLAXIS
     Dosage: 0.5 G, BID
     Route: 048
  12. PROGRAF [Concomitant]
     Active Substance: TACROLIMUS
     Indication: PROPHYLAXIS AGAINST TRANSPLANT REJECTION
     Dosage: 6 MG, BID
     Route: 048
  13. APIDRA [Concomitant]
     Active Substance: INSULIN GLULISINE
     Indication: DIABETES MELLITUS
     Dosage: 13 U, PRN
     Route: 058
  14. ATORIS [Concomitant]
     Active Substance: ATORVASTATIN CALCIUM
     Indication: ATHEROSCLEROSIS PROPHYLAXIS
     Dosage: 10 MG, QD
     Route: 048
  15. CONTROLOC [Concomitant]
     Active Substance: PANTOPRAZOLE SODIUM
     Indication: PROPHYLAXIS AGAINST GASTROINTESTINAL ULCER
     Dosage: 40 MG, QD
     Route: 048
  16. ANOPYRIN [Concomitant]
     Active Substance: ASPIRIN
     Indication: ANTIPLATELET THERAPY
     Dosage: 100 MG, QD
     Route: 048
  17. AGEN [Concomitant]
     Active Substance: AMLODIPINE BESYLATE
     Indication: HYPERTENSION
     Dosage: 5 MG, BID
     Route: 048
  18. MYCOPHENOLATE MOFETIL. [Suspect]
     Active Substance: MYCOPHENOLATE MOFETIL
     Indication: PRODUCT USED FOR UNKNOWN INDICATION
     Dosage: UNK
     Route: 065
  19. PREDNISON [Concomitant]
     Active Substance: PREDNISONE
     Indication: PROPHYLAXIS AGAINST TRANSPLANT REJECTION
     Dosage: 20 MG, QD
     Route: 048

REACTIONS (2)
  - Biopsy [Not Recovered/Not Resolved]
  - Leukopenia [Not Recovered/Not Resolved]

NARRATIVE: CASE EVENT DATE: 20201020
